FAERS Safety Report 5112498-4 (Version None)
Quarter: 2006Q3

REPORT INFORMATION
  Report Type: 
  Country: None (occurrence: None)
  Receive Date: 20060922
  Receipt Date: 20060831
  Transmission Date: 20061208
  Serious: Yes (Other)
  Sender: FDA-Public Use
  Company Number: PHBS2006JP13400

PATIENT
  Age: 73 Year

DRUGS (1)
  1. TOFRANIL [Suspect]
     Dosage: 10 MG/D
     Route: 048

REACTIONS (4)
  - CONSTIPATION [None]
  - DIVERTICULAR PERFORATION [None]
  - DIVERTICULITIS [None]
  - PERITONITIS [None]
